FAERS Safety Report 6298829-0 (Version None)
Quarter: 2009Q3

REPORT INFORMATION
  Report Type: 
  Country: None (occurrence: None)
  Receive Date: 20090805
  Receipt Date: 20090805
  Transmission Date: 20100115
  Serious: Yes (Hospitalization)
  Sender: FDA-Public Use
  Company Number: None

PATIENT
  Age: 54 Year
  Sex: Male
  Weight: 123 kg

DRUGS (7)
  1. BYETTA [Suspect]
     Indication: TYPE 2 DIABETES MELLITUS
     Dosage: 10MG SC BID
  2. ACTUS [Concomitant]
  3. AMARYL [Concomitant]
  4. CRESTOR [Concomitant]
  5. PRINIVIL [Concomitant]
  6. STARLIX [Concomitant]
  7. TRICOR [Concomitant]

REACTIONS (2)
  - PANCREATITIS [None]
  - RENAL FAILURE ACUTE [None]
